FAERS Safety Report 23514015 (Version 4)
Quarter: 2024Q4

REPORT INFORMATION
  Report Type: Report from Study
  Country: JP (occurrence: JP)
  Receive Date: 20240212
  Receipt Date: 20241226
  Transmission Date: 20250114
  Serious: Yes (Hospitalization, Disabling)
  Sender: RIGEL PHARMACEUTICALS
  Company Number: JP-RIGEL PHARMACEUTICALS, INC.-2023FOS001306

PATIENT
  Age: 44 Year
  Sex: Female
  Weight: 51 kg

DRUGS (9)
  1. FOSTAMATINIB DISODIUM [Suspect]
     Active Substance: FOSTAMATINIB DISODIUM
     Indication: Immune thrombocytopenia
     Dosage: 100 MG, BID
     Route: 048
     Dates: start: 20230818
  2. FOSTAMATINIB DISODIUM [Suspect]
     Active Substance: FOSTAMATINIB DISODIUM
     Dosage: 150 MG, BID
     Route: 048
     Dates: start: 20230922, end: 20230929
  3. PREDONINE [Concomitant]
     Active Substance: PREDNISOLONE
     Indication: Product used for unknown indication
     Dosage: UNK
     Route: 065
     Dates: start: 20230918
  4. PREDNISOLONE [Concomitant]
     Active Substance: PREDNISOLONE
     Indication: Immune thrombocytopenia
     Dosage: 10 MG, QD
     Route: 048
  5. ROMIPLOSTIM [Concomitant]
     Active Substance: ROMIPLOSTIM
     Indication: Immune thrombocytopenia
     Dosage: 500MCG, QW
     Route: 058
     Dates: start: 20230922
  6. VONOPRAZAN FUMARATE [Concomitant]
     Active Substance: VONOPRAZAN FUMARATE
     Indication: Product used for unknown indication
     Dosage: UNK
     Route: 048
  7. FEBUXOSTAT [Concomitant]
     Active Substance: FEBUXOSTAT
     Indication: Product used for unknown indication
     Dosage: UNK
     Route: 048
  8. ZOLPIDEM TARTRATE [Concomitant]
     Active Substance: ZOLPIDEM TARTRATE
     Indication: Product used for unknown indication
     Dosage: UNK
     Route: 048
  9. DAPRODUSTAT [Concomitant]
     Active Substance: DAPRODUSTAT
     Indication: Product used for unknown indication
     Dosage: UNK
     Route: 048

REACTIONS (2)
  - Chronic kidney disease [Recovered/Resolved with Sequelae]
  - Hypertension [Recovering/Resolving]

NARRATIVE: CASE EVENT DATE: 20230929
